FAERS Safety Report 8446933-0 (Version None)
Quarter: 2012Q2

REPORT INFORMATION
  Report Type: 
  Country: None (occurrence: None)
  Receive Date: 20120613
  Receipt Date: 20120613
  Transmission Date: 20120825
  Serious: Yes (Hospitalization, Other)
  Sender: FDA-Public Use
  Company Number: None

PATIENT
  Sex: Female

DRUGS (1)
  1. ARICEPT [Suspect]
     Indication: AMNESIA
     Dosage: 10 MG

REACTIONS (5)
  - WEIGHT DECREASED [None]
  - DIARRHOEA [None]
  - MUSCLE SPASMS [None]
  - INSOMNIA [None]
  - DECREASED APPETITE [None]
